FAERS Safety Report 18702030 (Version 1)
Quarter: 2021Q1

REPORT INFORMATION
  Report Type: Spontaneous
  Country: CN (occurrence: CN)
  Receive Date: 20210105
  Receipt Date: 20210105
  Transmission Date: 20210419
  Serious: Yes (Hospitalization, Other)
  Sender: FDA-Public Use
  Company Number: CN-ALVOGEN-2021-ALVOGEN-115871

PATIENT
  Age: 37 Year
  Sex: Male

DRUGS (2)
  1. VORICONAZOLE. [Suspect]
     Active Substance: VORICONAZOLE
     Indication: ASPERGILLUS INFECTION
     Route: 048
  2. SUCCINIC ACID [Concomitant]
     Active Substance: SUCCINIC ACID
     Indication: BLADDER SPASM
     Route: 048

REACTIONS (5)
  - Urinary bladder rupture [Recovered/Resolved]
  - Cerebral infarction [Recovered/Resolved]
  - Haemorrhage [Recovered/Resolved]
  - Cystitis haemorrhagic [Recovered/Resolved]
  - Hypovolaemia [Recovered/Resolved]
